FAERS Safety Report 21309912 (Version 3)
Quarter: 2022Q3

REPORT INFORMATION
  Report Type: Report from Study
  Country: DE (occurrence: US)
  Receive Date: 20220909
  Receipt Date: 20220927
  Transmission Date: 20221027
  Serious: Yes (Life-Threatening, Hospitalization, Other)
  Sender: FDA-Public Use
  Company Number: 2022A307587

PATIENT
  Age: 62 Year
  Sex: Male

DRUGS (69)
  1. BRICANYL [Suspect]
     Active Substance: TERBUTALINE SULFATE
     Indication: Dyspnoea
     Dosage: DOSAGE REGIMEN: 1/2-0-1/2
     Route: 065
     Dates: start: 20050627, end: 20050709
  2. BRICANYL [Suspect]
     Active Substance: TERBUTALINE SULFATE
     Indication: Dyspnoea
     Dosage: DOSAGE REGIMEN: 1/2-0-1/2
     Route: 065
     Dates: start: 20050627, end: 20050709
  3. HYDROCHLOROTHIAZIDE\RAMIPRIL [Suspect]
     Active Substance: HYDROCHLOROTHIAZIDE\RAMIPRIL
     Indication: Cardiovascular disorder
     Dosage: DAILY DOSE: 1 DF DOSAGE FORM EVERY DAY
     Route: 048
     Dates: start: 20050703
  4. HYDROCHLOROTHIAZIDE\RAMIPRIL [Suspect]
     Active Substance: HYDROCHLOROTHIAZIDE\RAMIPRIL
     Indication: Cardiovascular disorder
     Dosage: 5/25 1-0-0
     Route: 048
     Dates: start: 20050703
  5. OMEPRAZOLE [Suspect]
     Active Substance: OMEPRAZOLE
     Indication: Prophylaxis
     Dosage: DRUG NAME: GASTRACID. DOSAGE REGIMEN: 0-0-1.
     Route: 048
     Dates: start: 20050718
  6. OMEPRAZOLE [Suspect]
     Active Substance: OMEPRAZOLE
     Indication: Prophylaxis against gastrointestinal ulcer
     Dosage: DRUG NAME: GASTRACID. DOSAGE REGIMEN: 0-0-1.
     Route: 048
     Dates: start: 20050718
  7. OMEPRAZOLE [Suspect]
     Active Substance: OMEPRAZOLE
     Indication: Prophylaxis
     Dosage: DRUG NAME: GASTRACID. DOSAGE REGIMEN: 0-0-1.
     Route: 048
     Dates: start: 20050719
  8. OMEPRAZOLE [Suspect]
     Active Substance: OMEPRAZOLE
     Indication: Prophylaxis against gastrointestinal ulcer
     Dosage: DRUG NAME: GASTRACID. DOSAGE REGIMEN: 0-0-1.
     Route: 048
     Dates: start: 20050719
  9. THEOPHYLLINE ANHYDROUS [Suspect]
     Active Substance: THEOPHYLLINE ANHYDROUS
     Indication: Chronic obstructive pulmonary disease
     Dosage: ROUTE: INTRAVENOUS. DOSAGE REGIMEN: 3-0-0, 1-0-0
     Route: 042
     Dates: start: 20050627, end: 20050630
  10. THEOPHYLLINE ANHYDROUS [Suspect]
     Active Substance: THEOPHYLLINE ANHYDROUS
     Indication: Chronic obstructive pulmonary disease
     Dosage: ROUTE: ORAL, DOSAGE REGIMEN:1-0-0
     Route: 048
     Dates: start: 20050704, end: 20050709
  11. THEOPHYLLINE ANHYDROUS [Suspect]
     Active Substance: THEOPHYLLINE ANHYDROUS
     Indication: Chronic obstructive pulmonary disease
     Dosage: ROUTE: INTRAVENOUS
     Route: 042
     Dates: start: 20050718, end: 20050718
  12. THEOPHYLLINE ANHYDROUS [Suspect]
     Active Substance: THEOPHYLLINE ANHYDROUS
     Indication: Chronic obstructive pulmonary disease
     Dosage: ROUTE: INTRAVENOUS
     Route: 042
     Dates: start: 20050721, end: 20050721
  13. ACETYLCYSTEINE [Suspect]
     Active Substance: ACETYLCYSTEINE
     Indication: Productive cough
     Dosage: DAILY DOSE: 600 MG MILLIGRAM(S) EVERY DAY
     Route: 065
     Dates: start: 20050629, end: 20050712
  14. AMBROXOL [Suspect]
     Active Substance: AMBROXOL
     Indication: Unevaluable event
     Dosage: DAILY DOSE: 28 GTT DROP(S) EVERY DAY
     Route: 065
     Dates: start: 20050701, end: 20050718
  15. FLUTICASONE PROPIONATE\SALMETEROL XINAFOATE [Suspect]
     Active Substance: FLUTICASONE PROPIONATE\SALMETEROL XINAFOATE
     Indication: Chronic obstructive pulmonary disease
     Dosage: UNKNOWN
     Route: 065
  16. FLUTICASONE PROPIONATE\SALMETEROL XINAFOATE [Suspect]
     Active Substance: FLUTICASONE PROPIONATE\SALMETEROL XINAFOATE
     Indication: Chronic obstructive pulmonary disease
     Dosage: 1-0-1
     Route: 065
     Dates: start: 20050718
  17. MOXIFLOXACIN HYDROCHLORIDE [Suspect]
     Active Substance: MOXIFLOXACIN HYDROCHLORIDE
     Indication: Infective exacerbation of chronic obstructive airways disease
     Dosage: DOSAGE REGIMEN: 1-0-0,400 MG, QD
     Route: 065
     Dates: start: 20050627, end: 20050703
  18. BEROTEC [Suspect]
     Active Substance: FENOTEROL HYDROBROMIDE
     Indication: Chronic obstructive pulmonary disease
     Dosage: DOSAGE REGIMEN: 2-3X/WO
     Route: 065
     Dates: start: 20040601
  19. MINERALS\VITAMINS [Suspect]
     Active Substance: MINERALS\VITAMINS
     Indication: Osteoporosis
     Dosage: DOSAGE REGIMEN: 1-0-1. DRUG NAME: CA-MINERALIEN.
     Route: 065
     Dates: start: 20050715, end: 20050718
  20. PREDNISONE [Suspect]
     Active Substance: PREDNISONE
     Dosage: 100 MG, QD
     Route: 065
  21. PREDNISOLONE [Suspect]
     Active Substance: PREDNISOLONE
     Indication: Chronic obstructive pulmonary disease
     Dosage: 1-0-0, 100 MG 1-0-015.0MG UNKNOWN
     Route: 065
     Dates: start: 20050716, end: 20050718
  22. PREDNISOLONE [Suspect]
     Active Substance: PREDNISOLONE
     Indication: Chronic obstructive pulmonary disease
     Dosage: 1-0-0, 100 MG 1-0-015.0MG UNKNOWN
     Route: 065
     Dates: start: 20050716, end: 20050718
  23. PREDNISOLONE [Suspect]
     Active Substance: PREDNISOLONE
     Indication: Chronic obstructive pulmonary disease
     Dosage: 1-0-0, 100 MG 1-0-015.0MG UNKNOWN
     Route: 065
     Dates: start: 20050721, end: 20050721
  24. PREDNISOLONE [Suspect]
     Active Substance: PREDNISOLONE
     Indication: Chronic obstructive pulmonary disease
     Dosage: 1-0-0, 100 MG 1-0-015.0MG UNKNOWN
     Route: 065
     Dates: start: 20050721, end: 20050721
  25. DIGITOXIN [Suspect]
     Active Substance: DIGITOXIN
     Indication: Coronary artery disease
     Dosage: DAILY DOSE: 0.1 MG MILLIGRAM(S) EVERY DAY
     Route: 065
     Dates: start: 20050708
  26. CLOMETHIAZOLE [Suspect]
     Active Substance: CLOMETHIAZOLE
     Indication: Alcohol withdrawal syndrome
     Dosage: 2-2-2,2 DF, TID
     Route: 065
     Dates: start: 20050630, end: 20050703
  27. FORADIL [Suspect]
     Active Substance: FORMOTEROL FUMARATE
     Indication: Chronic obstructive pulmonary disease
     Dosage: DAILY DOSE: 2 DF DOSAGE FORM EVERY DAY
     Route: 065
     Dates: start: 20050629, end: 20050718
  28. FORADIL [Suspect]
     Active Substance: FORMOTEROL FUMARATE
     Indication: Chronic obstructive pulmonary disease
     Dosage: 2 DF, QD
     Route: 065
  29. FUROSEMIDE [Suspect]
     Active Substance: FUROSEMIDE
     Indication: Hypertension
     Dosage: DAILY DOSE: 40 MG MILLIGRAM(S) EVERY DAY
     Route: 065
     Dates: start: 20050707
  30. OMEPRAZOLE [Suspect]
     Active Substance: OMEPRAZOLE
     Indication: Prophylaxis
     Dosage: 0-0-1
     Route: 065
     Dates: start: 20050719
  31. HEPARIN SODIUM [Suspect]
     Active Substance: HEPARIN SODIUM
     Indication: Thrombosis prophylaxis
     Dosage: DOSAGE REGIMEN: 1-0-0
     Route: 065
     Dates: start: 20050627, end: 20050709
  32. INSULIN NOS [Suspect]
     Active Substance: INSULIN NOS
     Indication: Blood glucose abnormal
     Route: 065
     Dates: start: 20050703, end: 20050703
  33. ISOPTIN [Suspect]
     Active Substance: VERAPAMIL HYDROCHLORIDE
     Indication: Atrial fibrillation
     Dosage: DOSAGE REGIMEN: 0-0-0-1, 1-1-0-0
     Route: 065
     Dates: start: 20050709
  34. BECLOMETHASONE DIPROPIONATE [Suspect]
     Active Substance: BECLOMETHASONE DIPROPIONATE
     Indication: Chronic obstructive pulmonary disease
     Dosage: DAILY DOSE: 2 DF DOSAGE FORM EVERY DAY
     Route: 065
     Dates: start: 20050627, end: 20050715
  35. BECLOMETHASONE DIPROPIONATE [Suspect]
     Active Substance: BECLOMETHASONE DIPROPIONATE
     Indication: Chronic obstructive pulmonary disease
     Dosage: 2 DF, QD
     Route: 065
  36. POTASSIUM CHLORIDE [Suspect]
     Active Substance: POTASSIUM CHLORIDE
     Indication: Hypokalaemia
     Dosage: 1-0-0
     Route: 065
     Dates: start: 20050704, end: 20050713
  37. NITROGLYCERIN [Suspect]
     Active Substance: NITROGLYCERIN
     Indication: Hypertension
     Dosage: 0-050.0MG UNKNOWN
     Route: 065
     Dates: start: 20050702, end: 20050702
  38. NORVASC [Suspect]
     Active Substance: AMLODIPINE BESYLATE
     Indication: Cardiovascular disorder
     Dosage: DOSAGE REGIMEN: 1-0-0
     Route: 065
     Dates: start: 20050704, end: 20050709
  39. MARCUMAR [Suspect]
     Active Substance: PHENPROCOUMON
     Indication: Atrial fibrillation
     Dosage: ACCORDING INR
     Route: 065
     Dates: start: 20050710
  40. CALCIUM CARBONATE\CHOLECALCIFEROL [Suspect]
     Active Substance: CALCIUM CARBONATE\CHOLECALCIFEROL
     Indication: Osteoporosis
     Dosage: DOSAGE REGIMEN: 1-0-1
     Route: 065
     Dates: start: 20050718
  41. CALCIUM CARBONATE\CHOLECALCIFEROL [Suspect]
     Active Substance: CALCIUM CARBONATE\CHOLECALCIFEROL
     Indication: Osteoporosis
     Route: 065
     Dates: start: 20050719
  42. OXAZEPAM [Suspect]
     Active Substance: OXAZEPAM
     Indication: Sedation
     Dosage: NOT STATED
     Route: 065
     Dates: start: 20050708, end: 20050708
  43. PANTOZOL [Suspect]
     Active Substance: PANTOPRAZOLE SODIUM
     Indication: Prophylaxis
     Dosage: 40 MG MILLIGRAM(S) EVERY DAY
     Route: 065
     Dates: start: 20050629, end: 20050630
  44. PANTOZOL [Suspect]
     Active Substance: PANTOPRAZOLE SODIUM
     Indication: Prophylaxis against gastrointestinal ulcer
     Dosage: 40 MG MILLIGRAM(S) EVERY DAY
     Route: 065
     Dates: start: 20050629, end: 20050630
  45. PANTOZOL [Suspect]
     Active Substance: PANTOPRAZOLE SODIUM
     Indication: Prophylaxis
     Dosage: DAILY DOSE: 40 MG MILLIGRAM(S) EVERY DAY
     Route: 065
     Dates: start: 20050703, end: 20050718
  46. PANTOZOL [Suspect]
     Active Substance: PANTOPRAZOLE SODIUM
     Indication: Prophylaxis against gastrointestinal ulcer
     Dosage: DAILY DOSE: 40 MG MILLIGRAM(S) EVERY DAY
     Route: 065
     Dates: start: 20050703, end: 20050718
  47. CLONIDINE [Suspect]
     Active Substance: CLONIDINE
     Indication: Alcohol withdrawal syndrome
     Dosage: 1-0-01.5MG UNKNOWN
     Route: 065
     Dates: start: 20050628, end: 20050630
  48. CLONIDINE [Suspect]
     Active Substance: CLONIDINE
     Indication: Alcohol withdrawal syndrome
     Dosage: 1.5 MG, QD1.5MG UNKNOWN
     Route: 065
     Dates: start: 20050703, end: 20050704
  49. PHENPROCOUMON [Suspect]
     Active Substance: PHENPROCOUMON
     Indication: Atrial fibrillation
     Dosage: UNKNOWN
     Route: 065
     Dates: start: 20050710
  50. PREDNISOLONE [Suspect]
     Active Substance: PREDNISOLONE
     Indication: Chronic obstructive pulmonary disease
     Dosage: 50 MG 0-0, 280 MG-0-0, 20 MG-0-0, 5 MG 1-2-3.
     Route: 065
     Dates: start: 20050630, end: 20050705
  51. PREDNISOLONE [Suspect]
     Active Substance: PREDNISOLONE
     Indication: Chronic obstructive pulmonary disease
     Dosage: 50 MG 0-0, 280 MG-0-0, 20 MG-0-0, 5 MG 1-2-3.
     Route: 065
     Dates: start: 20050707, end: 20050715
  52. PREDNISOLONE [Suspect]
     Active Substance: PREDNISOLONE
     Indication: Chronic obstructive pulmonary disease
     Dosage: 5 MG, UNK5.0MG UNKNOWN
     Route: 065
     Dates: start: 20050719
  53. PREDNISOLONE [Suspect]
     Active Substance: PREDNISOLONE
     Indication: Chronic obstructive pulmonary disease
     Dosage: 50 MG, QD
     Route: 065
  54. PREDNISOLONE [Suspect]
     Active Substance: PREDNISOLONE
     Indication: Chronic obstructive pulmonary disease
     Route: 065
     Dates: start: 20050628, end: 20050705
  55. PREDNISOLONE [Suspect]
     Active Substance: PREDNISOLONE
     Indication: Chronic obstructive pulmonary disease
     Dosage: 100 MG, QD
     Route: 065
  56. PREDNISOLONE [Suspect]
     Active Substance: PREDNISOLONE
     Indication: Chronic obstructive pulmonary disease
     Dosage: 15 MG, QD
     Route: 065
     Dates: start: 20050716, end: 20050718
  57. SPIRIVA [Suspect]
     Active Substance: TIOTROPIUM BROMIDE MONOHYDRATE
     Indication: Chronic obstructive pulmonary disease
     Dosage: 1 DF, QD
     Route: 065
  58. SPIRIVA [Suspect]
     Active Substance: TIOTROPIUM BROMIDE MONOHYDRATE
     Indication: Chronic obstructive pulmonary disease
     Dosage: DOSAGE REGIMEN: 1-0-0
     Route: 065
     Dates: start: 20040601
  59. CLORAZEPATE DIPOTASSIUM [Suspect]
     Active Substance: CLORAZEPATE DIPOTASSIUM
     Indication: Sedation
     Dosage: DOSAGE REGIMEN: 1-1-1-25.0MG UNKNOWN
     Route: 065
     Dates: start: 20220627, end: 20220702
  60. CLORAZEPATE DIPOTASSIUM [Suspect]
     Active Substance: CLORAZEPATE DIPOTASSIUM
     Indication: Sedation
     Dosage: 10 MG, QD10.0MG UNKNOWN
     Route: 065
     Dates: start: 20050705, end: 20050705
  61. CLORAZEPATE DIPOTASSIUM [Suspect]
     Active Substance: CLORAZEPATE DIPOTASSIUM
     Indication: Sedation
     Dosage: 10 MG, QD10.0MG UNKNOWN
     Route: 065
  62. VERAPAMIL HYDROCHLORIDE [Suspect]
     Active Substance: VERAPAMIL HYDROCHLORIDE
     Indication: Atrial fibrillation
     Dosage: DOSAGE REGIMEN: 1-0-0-0, 1-1-0-1
     Route: 065
     Dates: start: 20050718
  63. CHOLECALCIFEROL [Suspect]
     Active Substance: CHOLECALCIFEROL
     Indication: Osteoporosis
     Dosage: 1000 IE. DOSAGE REGIMEN: 1-0-0
     Route: 065
     Dates: start: 20050717, end: 20050717
  64. CHOLECALCIFEROL [Suspect]
     Active Substance: CHOLECALCIFEROL
     Indication: Osteoporosis
     Dosage: 1000 IE. DOSAGE REGIMEN: 1-0-0
     Route: 065
     Dates: start: 20050718, end: 20050718
  65. FRUCTOSE\INSULIN BEEF [Concomitant]
     Active Substance: FRUCTOSE\INSULIN BEEF
     Route: 065
     Dates: start: 20050703, end: 20050703
  66. DELIX [Concomitant]
     Indication: Cardiovascular disorder
     Dosage: 1-0-0
     Route: 065
     Dates: start: 20050630, end: 20050702
  67. HALOPERIDOL [Concomitant]
     Active Substance: HALOPERIDOL
     Indication: Sedation
     Dosage: DRUG NAME: HALOPERIDOL TROPFEN. DOSAGE REGIMEN: 10-0-0
     Route: 065
     Dates: start: 20050629, end: 20050630
  68. HALOPERIDOL [Concomitant]
     Active Substance: HALOPERIDOL
     Indication: Sedation
     Dosage: 10 GTT, QD
     Route: 065
     Dates: start: 20050703
  69. RINGERLOESUNG [Concomitant]
     Indication: Unevaluable event
     Dosage: 1-0-01000.0ML UNKNOWN
     Route: 065
     Dates: start: 20050627, end: 20050703

REACTIONS (6)
  - Pruritus [Unknown]
  - Blister [Unknown]
  - Nikolsky^s sign [Unknown]
  - Toxic epidermal necrolysis [Recovered/Resolved]
  - Pyrexia [Unknown]
  - Stevens-Johnson syndrome [Recovered/Resolved]

NARRATIVE: CASE EVENT DATE: 20050721
